FAERS Safety Report 15123446 (Version 1)
Quarter: 2018Q3

REPORT INFORMATION
  Report Type: Report from Study
  Country: None (occurrence: IL)
  Receive Date: 20180709
  Receipt Date: 20180709
  Transmission Date: 20181010
  Serious: Yes (Hospitalization)
  Sender: FDA-Public Use
  Company Number: IL-ABBVIE-17K-082-1996764-00

PATIENT
  Age: 26 Year
  Sex: Female
  Weight: 61 kg

DRUGS (5)
  1. RAFASSAL [Concomitant]
     Indication: CROHN^S DISEASE
  2. HUMIRA [Suspect]
     Active Substance: ADALIMUMAB
     Indication: CROHN^S DISEASE
     Dosage: FIRST DOSE
     Route: 058
     Dates: start: 20170521, end: 20170521
  3. HUMIRA [Suspect]
     Active Substance: ADALIMUMAB
     Route: 058
     Dates: start: 2017
  4. HUMIRA [Suspect]
     Active Substance: ADALIMUMAB
     Route: 058
     Dates: start: 2017, end: 2017
  5. HUMIRA [Suspect]
     Active Substance: ADALIMUMAB
     Route: 058
     Dates: start: 2017, end: 20170810

REACTIONS (32)
  - Injection site irritation [Unknown]
  - Oedema peripheral [Recovered/Resolved]
  - Nasopharyngitis [Not Recovered/Not Resolved]
  - Exposure during pregnancy [Unknown]
  - Cerebral cyst [Unknown]
  - Dizziness [Unknown]
  - Nausea [Unknown]
  - Respiratory tract congestion [Unknown]
  - Live birth [Unknown]
  - Mastitis [Unknown]
  - Sinus disorder [Recovered/Resolved]
  - Injection site haematoma [Not Recovered/Not Resolved]
  - Injection site erythema [Recovered/Resolved]
  - Injection site swelling [Recovered/Resolved]
  - Malaise [Unknown]
  - C-reactive protein increased [Unknown]
  - Anal fissure [Unknown]
  - Immunosuppression [Unknown]
  - Weight decreased [Unknown]
  - Injection site rash [Recovered/Resolved]
  - Injection site erythema [Recovered/Resolved]
  - Injection site pruritus [Not Recovered/Not Resolved]
  - Headache [Unknown]
  - Pyrexia [Recovered/Resolved]
  - Crohn^s disease [Unknown]
  - Injection site warmth [Not Recovered/Not Resolved]
  - Neutropenia [Unknown]
  - Sinusitis [Unknown]
  - Uterine infection [Recovered/Resolved]
  - Abnormal faeces [Unknown]
  - Alpha 1 foetoprotein increased [Unknown]
  - Joint swelling [Recovered/Resolved]

NARRATIVE: CASE EVENT DATE: 2017
